FAERS Safety Report 7642072-7 (Version None)
Quarter: 2011Q3

REPORT INFORMATION
  Report Type: 
  Country: None (occurrence: None)
  Receive Date: 20110728
  Receipt Date: 20110720
  Transmission Date: 20111222
  Serious: Yes (Death, Hospitalization)
  Sender: FDA-Public Use
  Company Number: US-ELI_LILLY_AND_COMPANY-US201105002242

PATIENT
  Sex: Male

DRUGS (1)
  1. GEMZAR [Suspect]
     Indication: BLADDER CANCER
     Dosage: UNK, ON DAYS 1 AND 8
     Route: 042
     Dates: start: 20100916, end: 20101013

REACTIONS (2)
  - SEPSIS [None]
  - NEOPLASM PROGRESSION [None]
